FAERS Safety Report 10210400 (Version 1)
Quarter: 2014Q2

REPORT INFORMATION
  Report Type: Spontaneous
  Country: US (occurrence: None)
  Receive Date: 20140529
  Receipt Date: 20140529
  Transmission Date: 20141212
  Serious: Yes (Other)
  Sender: FDA-Public Use
  Company Number: None

PATIENT
  Age: 9 Year
  Sex: Female
  Weight: 32.5 kg

DRUGS (1)
  1. ASMANEX [Suspect]
     Indication: ASTHMA
     Dosage: 1 PUFF QD ORAL
     Route: 048
     Dates: start: 20140516

REACTIONS (4)
  - Intercepted drug dispensing error [None]
  - Product lot number issue [None]
  - Device malfunction [None]
  - Device physical property issue [None]
